FAERS Safety Report 6866455-8 (Version None)
Quarter: 2010Q3

REPORT INFORMATION
  Report Type: 
  Country: None (occurrence: None)
  Receive Date: 20100722
  Receipt Date: 20100719
  Transmission Date: 20110219
  Serious: Yes (Hospitalization)
  Sender: FDA-Public Use
  Company Number: FR-BRISTOL-MYERS SQUIBB COMPANY-15201783

PATIENT
  Age: 83 Year
  Sex: Female

DRUGS (3)
  1. PRAVIGARD PAC (COPACKAGED) [Suspect]
     Dosage: 1 DF=81MG/40MG
     Dates: end: 20070723
  2. MODOPAR [Concomitant]
     Route: 058
  3. CALCIPARINE [Concomitant]
     Route: 058

REACTIONS (4)
  - GASTRIC ULCER [None]
  - GASTROINTESTINAL HAEMORRHAGE [None]
  - HAEMOGLOBIN DECREASED [None]
  - HELICOBACTER TEST POSITIVE [None]
